FAERS Safety Report 14345575 (Version 4)
Quarter: 2024Q2

REPORT INFORMATION
  Report Type: Report from Study
  Country: BR (occurrence: BR)
  Receive Date: 20180103
  Receipt Date: 20240509
  Transmission Date: 20240716
  Serious: Yes (Other)
  Sender: FDA-Public Use
  Company Number: PHHY2017BR129109

PATIENT
  Age: 64 Year
  Sex: Female
  Weight: 70 kg

DRUGS (11)
  1. DIOVAN [Suspect]
     Active Substance: VALSARTAN
     Indication: Hypertension
     Dosage: 80 MG, QD (IN THE MORNING), STARTED 3 YEARS AGO
     Route: 048
  2. DIOVAN [Suspect]
     Active Substance: VALSARTAN
     Dosage: 80 MG, QD (IN THE MORNING)
     Route: 048
  3. DIOVAN [Suspect]
     Active Substance: VALSARTAN
     Dosage: 1 DF, QD
     Route: 048
  4. BRINZOLAMIDE\TIMOLOL MALEATE [Suspect]
     Active Substance: BRINZOLAMIDE\TIMOLOL MALEATE
     Indication: Ocular hypertension
     Dosage: 1 GTT, BID
     Route: 047
  5. TIMOLOL MALEATE\TRAVOPROST [Suspect]
     Active Substance: TIMOLOL MALEATE\TRAVOPROST
     Indication: Glaucoma
     Dosage: 1 DROP A DAY
     Route: 047
     Dates: start: 20170405
  6. SIMBRINZA [Suspect]
     Active Substance: BRIMONIDINE TARTRATE\BRINZOLAMIDE
     Indication: Glaucoma
     Dosage: 1 DROP, BID (USING IT FOR 5 MONTHS)
     Route: 047
  7. TIMOLOL MALEATE [Suspect]
     Active Substance: TIMOLOL MALEATE
     Indication: Glaucoma
     Dosage: 1 DROP, BID (2 TO 3 MONTHS), USES IT 30 MINS AFTER SIMBRINZA
     Route: 047
  8. PHENYTOIN [Concomitant]
     Active Substance: PHENYTOIN
     Indication: Taeniasis
     Dosage: 2 DOSAGE FORM, QD (20 YEARS)
     Route: 048
  9. PHENYTOIN [Concomitant]
     Active Substance: PHENYTOIN
     Indication: Epilepsy
  10. PHENOBARBITAL [Concomitant]
     Active Substance: PHENOBARBITAL
     Indication: Taeniasis
     Dosage: 2 DOSAGE FORM, QD (20 YEARS AGO)
     Route: 048
  11. PHENOBARBITAL [Concomitant]
     Active Substance: PHENOBARBITAL
     Indication: Epilepsy

REACTIONS (5)
  - Cataract [Unknown]
  - Hypersensitivity [Recovering/Resolving]
  - Ocular hyperaemia [Recovered/Resolved]
  - Eye pain [Recovering/Resolving]
  - Pain in extremity [Recovering/Resolving]

NARRATIVE: CASE EVENT DATE: 20180614
